FAERS Safety Report 21347470 (Version 8)
Quarter: 2024Q2

REPORT INFORMATION
  Report Type: Other
  Country: JP (occurrence: JP)
  Receive Date: 20220919
  Receipt Date: 20240422
  Transmission Date: 20240715
  Serious: Yes (Other)
  Sender: FDA-Public Use
  Company Number: JP-CHUGAI-2021001293

PATIENT
  Age: 77 Year
  Sex: Male

DRUGS (13)
  1. AVASTIN [Suspect]
     Active Substance: BEVACIZUMAB
     Indication: Hepatocellular carcinoma
     Dosage: 910 MILLIGRAM
     Route: 065
     Dates: start: 20210303
  2. AVASTIN [Suspect]
     Active Substance: BEVACIZUMAB
     Dosage: 910 MILLIGRAM
     Route: 065
     Dates: start: 20210512, end: 20210512
  3. AVASTIN [Suspect]
     Active Substance: BEVACIZUMAB
     Dosage: 850 MILLIGRAM
     Route: 065
     Dates: start: 20220105, end: 20220302
  4. AVASTIN [Suspect]
     Active Substance: BEVACIZUMAB
     Dosage: 850 MILLIGRAM
     Route: 065
     Dates: start: 20220420, end: 20220518
  5. AVASTIN [Suspect]
     Active Substance: BEVACIZUMAB
     Dosage: 850 MILLIGRAM
     Route: 065
     Dates: start: 20220803, end: 20230201
  6. AVASTIN [Suspect]
     Active Substance: BEVACIZUMAB
     Dosage: UNK MILLIGRAM
     Route: 065
     Dates: start: 20230524, end: 20230524
  7. AVASTIN [Suspect]
     Active Substance: BEVACIZUMAB
     Dosage: 500 MILLIGRAM
     Route: 065
     Dates: start: 20230816, end: 20230816
  8. TECENTRIQ [Suspect]
     Active Substance: ATEZOLIZUMAB
     Indication: Hepatocellular carcinoma
     Dosage: 1200 MILLIGRAM
     Route: 065
     Dates: start: 20210303
  9. TECENTRIQ [Suspect]
     Active Substance: ATEZOLIZUMAB
     Dosage: 1200 MILLIGRAM, SINGLE
     Route: 065
     Dates: start: 20210512, end: 20210512
  10. TECENTRIQ [Suspect]
     Active Substance: ATEZOLIZUMAB
     Dosage: 1200 MILLIGRAM
     Route: 041
     Dates: start: 20220105, end: 20220302
  11. TECENTRIQ [Suspect]
     Active Substance: ATEZOLIZUMAB
     Dosage: 1200 MILLIGRAM, ONCE/4WEEKS
     Route: 041
     Dates: start: 20220420, end: 20220518
  12. TECENTRIQ [Suspect]
     Active Substance: ATEZOLIZUMAB
     Dosage: 1200 UNK
     Route: 065
     Dates: start: 20220706, end: 20231109
  13. TECENTRIQ [Suspect]
     Active Substance: ATEZOLIZUMAB
     Dosage: 1200 UNK
     Route: 065
     Dates: start: 20231206

REACTIONS (2)
  - Chronic kidney disease [Recovered/Resolved]
  - Chronic kidney disease [Unknown]

NARRATIVE: CASE EVENT DATE: 20220706
